FAERS Safety Report 19707149 (Version 1)
Quarter: 2021Q3

REPORT INFORMATION
  Report Type: Spontaneous
  Country: US (occurrence: US)
  Receive Date: 20210817
  Receipt Date: 20210817
  Transmission Date: 20211014
  Serious: Yes (Hospitalization)
  Sender: FDA-Public Use
  Company Number: None

PATIENT
  Sex: Male

DRUGS (8)
  1. PANTOPRAZOLE [Concomitant]
     Active Substance: PANTOPRAZOLE
  2. GABAPENTIN. [Concomitant]
     Active Substance: GABAPENTIN
  3. SPRYCEL [Suspect]
     Active Substance: DASATINIB
     Indication: CHRONIC MYELOID LEUKAEMIA
     Route: 048
     Dates: start: 20210519
  4. CIPROFLOXACN [Concomitant]
     Active Substance: CIPROFLOXACIN
  5. FLUCONAZOLE. [Concomitant]
     Active Substance: FLUCONAZOLE
  6. ACYCLOVIR. [Concomitant]
     Active Substance: ACYCLOVIR
  7. CYCLOBENZAPRI [Concomitant]
  8. POLYETH GLYC [Concomitant]
     Active Substance: POLYETHYLENE GLYCOLS

REACTIONS (1)
  - Pneumonia [None]
